FAERS Safety Report 24205508 (Version 2)
Quarter: 2024Q3

REPORT INFORMATION
  Report Type: Spontaneous
  Country: US (occurrence: US)
  Receive Date: 20240813
  Receipt Date: 20240930
  Transmission Date: 20241017
  Serious: Yes (Other)
  Sender: PFIZER
  Company Number: US-PFIZER INC-202400233259

PATIENT
  Age: 44 Year
  Sex: Female

DRUGS (1)
  1. TIVDAK [Suspect]
     Active Substance: TISOTUMAB VEDOTIN-TFTV
     Indication: Cervix carcinoma
     Dosage: UNK, HIGHER DOSE
     Dates: start: 202311

REACTIONS (5)
  - Neuropathy peripheral [Recovering/Resolving]
  - Eye disorder [Recovering/Resolving]
  - Epistaxis [Recovered/Resolved]
  - Alopecia [Recovering/Resolving]
  - Fatigue [Recovering/Resolving]

NARRATIVE: CASE EVENT DATE: 20231101
